FAERS Safety Report 21272401 (Version 1)
Quarter: 2022Q3

REPORT INFORMATION
  Report Type: Spontaneous
  Country: US (occurrence: US)
  Receive Date: 20220830
  Receipt Date: 20220830
  Transmission Date: 20221026
  Serious: No
  Sender: FDA-Public Use
  Company Number: US-ABBVIE-22K-163-4469169-00

PATIENT
  Age: 31 Year
  Sex: Male
  Weight: 83.990 kg

DRUGS (2)
  1. MAVYRET [Suspect]
     Active Substance: GLECAPREVIR\PIBRENTASVIR
     Indication: Hepatitis C
     Route: 048
     Dates: start: 202207
  2. SUBOXONE [Concomitant]
     Active Substance: BUPRENORPHINE HYDROCHLORIDE\NALOXONE HYDROCHLORIDE
     Indication: Substance abuse

REACTIONS (1)
  - Penile discharge [Not Recovered/Not Resolved]

NARRATIVE: CASE EVENT DATE: 20220714
